FAERS Safety Report 21559923 (Version 1)
Quarter: 2022Q4

REPORT INFORMATION
  Report Type: Spontaneous
  Country: CA (occurrence: CA)
  Receive Date: 20221107
  Receipt Date: 20221107
  Transmission Date: 20230112
  Serious: Yes (Hospitalization, Other)
  Sender: FDA-Public Use
  Company Number: CA-SA-SAC20221103000956

PATIENT
  Age: 75 Year
  Sex: Male

DRUGS (13)
  1. DUPIXENT [Suspect]
     Active Substance: DUPILUMAB
     Indication: Dermatitis atopic
     Dosage: 300MG, EVERY 1 WEEK
     Route: 058
  2. ALLOPURINOL [Concomitant]
     Active Substance: ALLOPURINOL
     Dosage: UNK
  3. CALCIUM [Concomitant]
     Active Substance: CALCIUM
  4. CITALOPRAM [Concomitant]
     Active Substance: CITALOPRAM HYDROBROMIDE
  5. COLCHICINE [Concomitant]
     Active Substance: COLCHICINE
  6. MIRABEGRON [Concomitant]
     Active Substance: MIRABEGRON
  7. ROSUVASTATIN CALCIUM [Concomitant]
     Active Substance: ROSUVASTATIN CALCIUM
  8. VALSARTAN [Concomitant]
     Active Substance: VALSARTAN
  9. VITAMIN D NOS [Concomitant]
     Active Substance: VITAMIN D NOS
  10. MAGNESIUM [Concomitant]
     Active Substance: MAGNESIUM
  11. VITAMIN C [Concomitant]
     Active Substance: ASCORBIC ACID
  12. VITAMIN B12 [Concomitant]
     Active Substance: CYANOCOBALAMIN
  13. COVID-19 VACCINE [Concomitant]
     Indication: Immunisation

REACTIONS (8)
  - Acute myeloid leukaemia recurrent [Unknown]
  - Bone marrow failure [Unknown]
  - Malignant neoplasm progression [Unknown]
  - Pancytopenia [Unknown]
  - Lymphadenopathy [Unknown]
  - Drug intolerance [Unknown]
  - Skin toxicity [Unknown]
  - Product use issue [Unknown]
